FAERS Safety Report 4454715-X (Version None)
Quarter: 2004Q3

REPORT INFORMATION
  Report Type: 
  Country: None (occurrence: None)
  Receive Date: 20040920
  Receipt Date: 20040920
  Transmission Date: 20050211
  Serious: Yes (Hospitalization)
  Sender: FDA-Public Use
  Company Number: None

PATIENT
  Age: 31 Year
  Sex: Male
  Weight: 68 kg

DRUGS (2)
  1. NAPROSYN [Suspect]
     Indication: CHEST PAIN
     Dosage: 500 MG TWICE DAILY ORAL
     Route: 048
     Dates: start: 20040909, end: 20040914
  2. NAPROSYN [Suspect]
     Indication: INFLAMMATION
     Dosage: 500 MG TWICE DAILY ORAL
     Route: 048
     Dates: start: 20040909, end: 20040914

REACTIONS (4)
  - ABDOMINAL PAIN UPPER [None]
  - ANAEMIA [None]
  - RENAL FAILURE ACUTE [None]
  - THROMBOCYTOPENIA [None]
